FAERS Safety Report 17367055 (Version 1)
Quarter: 2020Q1

REPORT INFORMATION
  Report Type: Spontaneous
  Country: FR (occurrence: FR)
  Receive Date: 20200204
  Receipt Date: 20200204
  Transmission Date: 20200409
  Serious: Yes (Death, Hospitalization)
  Sender: FDA-Public Use
  Company Number: FR-009507513-2001FRA009932

PATIENT
  Age: 70 Year
  Sex: Male
  Weight: 74 kg

DRUGS (1)
  1. KEYTRUDA [Suspect]
     Active Substance: PEMBROLIZUMAB
     Indication: LUNG CARCINOMA CELL TYPE UNSPECIFIED STAGE 0
     Dosage: ONCE EVERY 3 WEEKS
     Route: 042
     Dates: start: 20190618, end: 201910

REACTIONS (2)
  - Interstitial lung disease [Fatal]
  - Myocarditis [Fatal]

NARRATIVE: CASE EVENT DATE: 20191120
